FAERS Safety Report 7077419-6 (Version None)
Quarter: 2010Q4

REPORT INFORMATION
  Report Type: 
  Country: None (occurrence: None)
  Receive Date: 20101101
  Receipt Date: 20101022
  Transmission Date: 20110411
  Serious: Yes (Hospitalization)
  Sender: FDA-Public Use
  Company Number: US-BAYER-201022428BCC

PATIENT
  Sex: Female
  Weight: 64 kg

DRUGS (4)
  1. CAMPHO-PHENIQUE COLD SORE TREATMENT FOR SCAB RELIEF [Suspect]
     Indication: CHEILITIS
     Route: 061
     Dates: start: 20101020
  2. TYLENOL SINUS [Concomitant]
  3. BENAZEPRIL HYDROCHLORIDE [Concomitant]
  4. PREMARIN [Concomitant]

REACTIONS (4)
  - ANGIOEDEMA [None]
  - ERYTHEMA [None]
  - LIP SWELLING [None]
  - SWELLING FACE [None]
